FAERS Safety Report 24992188 (Version 1)
Quarter: 2025Q1

REPORT INFORMATION
  Report Type: Spontaneous
  Country: BE (occurrence: BE)
  Receive Date: 20250220
  Receipt Date: 20250220
  Transmission Date: 20250409
  Serious: Yes (Hospitalization, Other)
  Sender: TEVA
  Company Number: BE-TEVA-VS-3299104

PATIENT
  Age: 68 Year
  Sex: Female

DRUGS (2)
  1. METHOTREXATE [Suspect]
     Active Substance: METHOTREXATE
     Indication: Product used for unknown indication
     Route: 065
  2. ADALIMUMAB [Suspect]
     Active Substance: ADALIMUMAB
     Indication: Rheumatoid arthritis
     Route: 065

REACTIONS (8)
  - Sarcoidosis [Recovered/Resolved]
  - Lymphadenopathy mediastinal [Recovered/Resolved]
  - Drug intolerance [Unknown]
  - Hypermetabolism [Recovered/Resolved]
  - Hilar lymphadenopathy [Recovered/Resolved]
  - Neutropenia [Recovered/Resolved]
  - Granuloma [Recovered/Resolved]
  - Spleen disorder [Recovered/Resolved]
